FAERS Safety Report 12642065 (Version 1)
Quarter: 2016Q3

REPORT INFORMATION
  Report Type: Spontaneous
  Country: US (occurrence: US)
  Receive Date: 20160810
  Receipt Date: 20160810
  Transmission Date: 20161109
  Serious: No
  Sender: FDA-Public Use
  Company Number: US-MISSION PHARMACAL COMPANY-1056169

PATIENT
  Age: 36 Year
  Sex: Female

DRUGS (1)
  1. THIOLA [Suspect]
     Active Substance: TIOPRONIN
     Indication: CALCULUS URINARY
     Route: 065
     Dates: start: 20160709

REACTIONS (5)
  - Drug ineffective [Unknown]
  - Iatrogenic injury [Unknown]
  - Drug dose omission [Unknown]
  - Pyrexia [Unknown]
  - Haemorrhage [None]
